FAERS Safety Report 5364688-3 (Version None)
Quarter: 2007Q2

REPORT INFORMATION
  Report Type: 
  Country: None (occurrence: None)
  Receive Date: 20070621
  Receipt Date: 20070618
  Transmission Date: 20071010
  Serious: Yes (Other)
  Sender: FDA-Public Use
  Company Number: PHEH2007US06305

PATIENT
  Age: 60 Year
  Sex: Female
  Weight: 85.26 kg

DRUGS (4)
  1. DIOVAN [Suspect]
     Dosage: 80 MG, QD
     Route: 048
     Dates: start: 20070129, end: 20070314
  2. SPIRONOLACTONE [Suspect]
     Dosage: 1 TAB, QD
     Dates: start: 20070130, end: 20070314
  3. COREG [Concomitant]
     Indication: CARDIOMYOPATHY
     Dosage: 12.5 MG, BID
     Route: 048
     Dates: start: 20070201
  4. LIPITOR [Concomitant]
     Dosage: 80 MG, QD
     Route: 048
     Dates: start: 20070101

REACTIONS (4)
  - CARDIAC FAILURE CONGESTIVE [None]
  - CARDIOMYOPATHY [None]
  - HEADACHE [None]
  - RASH [None]
